FAERS Safety Report 15312948 (Version 3)
Quarter: 2018Q3

REPORT INFORMATION
  Report Type: Report from Study
  Country: US (occurrence: US)
  Receive Date: 20180823
  Receipt Date: 20180914
  Transmission Date: 20181010
  Serious: Yes (Death, Hospitalization)
  Sender: FDA-Public Use
  Company Number: US-ALLERGAN-1841188US

PATIENT
  Age: 87 Year
  Sex: Male

DRUGS (15)
  1. PROAIR HFA [Concomitant]
     Active Substance: ALBUTEROL SULFATE
     Route: 055
  2. MEMANTINE HCL 28MG (TBD) [Suspect]
     Active Substance: MEMANTINE
     Indication: DEMENTIA ALZHEIMER^S TYPE
     Dosage: 28 MG, QD
     Dates: start: 20160212
  3. DONEPEZIL. [Concomitant]
     Active Substance: DONEPEZIL
  4. SIMBRINZA [Concomitant]
     Active Substance: BRIMONIDINE TARTRATE\BRINZOLAMIDE
     Route: 047
  5. OMEPRAZOLE. [Concomitant]
     Active Substance: OMEPRAZOLE
  6. VITAMIN D                          /00107901/ [Concomitant]
     Active Substance: ERGOCALCIFEROL
  7. MUCINEX [Concomitant]
     Active Substance: GUAIFENESIN
  8. SILODOSIN [Concomitant]
     Active Substance: SILODOSIN
  9. VITAMIN B12 [Concomitant]
     Active Substance: CYANOCOBALAMIN
  10. LATANAPROST [Concomitant]
     Active Substance: LATANOPROST
  11. PAXIL [Concomitant]
     Active Substance: PAROXETINE HYDROCHLORIDE
  12. AZOPT [Concomitant]
     Active Substance: BRINZOLAMIDE
     Route: 047
  13. FUROSEMIDE. [Concomitant]
     Active Substance: FUROSEMIDE
  14. SIMVASTATIN. [Concomitant]
     Active Substance: SIMVASTATIN
  15. ANORO ELLIPTA [Concomitant]
     Active Substance: UMECLIDINIUM BROMIDE\VILANTEROL TRIFENATATE

REACTIONS (3)
  - Urinary retention [Not Recovered/Not Resolved]
  - Death [Fatal]
  - Abdominal pain [Not Recovered/Not Resolved]

NARRATIVE: CASE EVENT DATE: 20180722
